FAERS Safety Report 15204233 (Version 1)
Quarter: 2018Q3

REPORT INFORMATION
  Report Type: Spontaneous
  Country: US (occurrence: US)
  Receive Date: 20180726
  Receipt Date: 20180726
  Transmission Date: 20181010
  Serious: No
  Sender: FDA-Public Use
  Company Number: US-GLAXOSMITHKLINE-US2018129647

PATIENT
  Sex: Female

DRUGS (1)
  1. ANORO ELLIPTA [Suspect]
     Active Substance: UMECLIDINIUM BROMIDE\VILANTEROL TRIFENATATE
     Indication: CHRONIC OBSTRUCTIVE PULMONARY DISEASE
     Route: 055
     Dates: start: 201710, end: 20180717

REACTIONS (6)
  - Nasopharyngitis [Unknown]
  - Dyspnoea [Unknown]
  - Throat tightness [Unknown]
  - Dizziness [Recovered/Resolved]
  - Oropharyngeal pain [Unknown]
  - Swollen tongue [Recovering/Resolving]
